FAERS Safety Report 5357184-0 (Version None)
Quarter: 2007Q2

REPORT INFORMATION
  Report Type: 
  Country: None (occurrence: None)
  Receive Date: 20070614
  Receipt Date: 20070605
  Transmission Date: 20071010
  Serious: Yes (Hospitalization, Other)
  Sender: FDA-Public Use
  Company Number: US-JNJFOC-20070601738

PATIENT
  Sex: Female
  Weight: 65.77 kg

DRUGS (6)
  1. FENTANYL TRANSDERMAL SYSTEM [Suspect]
     Route: 062
  2. FENTANYL TRANSDERMAL SYSTEM [Suspect]
     Indication: ARTHRALGIA
     Route: 062
  3. DILAUDID [Concomitant]
     Indication: PAIN
     Dosage: 1-2 X 2MG TABLETS DAILY
     Route: 048
  4. DIOVAN [Concomitant]
     Dosage: 1-2 X 2MG TABLETS DAILY
     Route: 048
  5. COREG [Concomitant]
     Dosage: 1-2 X 2MG TABLETS DAILY
     Route: 048
  6. HYDROCHLOROTHIAZIDE [Concomitant]
     Dosage: 1-2 X 2MG TABLETS DAILY
     Route: 048

REACTIONS (5)
  - DEPRESSION [None]
  - GASTRIC DISORDER [None]
  - PROCEDURAL COMPLICATION [None]
  - URINARY INCONTINENCE [None]
  - WRONG TECHNIQUE IN DRUG USAGE PROCESS [None]
